FAERS Safety Report 8265459-0 (Version None)
Quarter: 2012Q2

REPORT INFORMATION
  Report Type: 
  Country: None (occurrence: None)
  Receive Date: 20120406
  Receipt Date: 20120330
  Transmission Date: 20120825
  Serious: Yes (Hospitalization)
  Sender: FDA-Public Use
  Company Number: FR-PFIZER INC-2011265134

PATIENT
  Age: 75 Year
  Sex: Female
  Weight: 64 kg

DRUGS (8)
  1. LEVOTHYROXINE SODIUM [Concomitant]
     Dosage: 87.5 UG, 1X/DAY
  2. AMITRIPTYLINE HCL [Concomitant]
     Dosage: 10 TO 15 GTT 1X/DAY, IN THE EVENING
  3. LASIX [Concomitant]
     Dosage: 40 MG, UNK
  4. EPLERENONE [Suspect]
     Indication: CYTOTOXIC CARDIOMYOPATHY
     Dosage: 25 MG, 1X/DAY
     Dates: start: 20081107
  5. ASPIRIN [Concomitant]
     Dosage: 75 MG, 1X/DAY
  6. LASIX [Concomitant]
     Dosage: 40 MG, 1X/DAY
     Dates: start: 20080101
  7. BISOPROLOL FUMARATE [Concomitant]
     Dosage: 3.75 MG, 1X/DAY
  8. ATACAND [Concomitant]
     Dosage: 16 MG, 1X/DAY

REACTIONS (3)
  - IRON DEFICIENCY ANAEMIA [None]
  - INTESTINAL POLYP [None]
  - GASTROINTESTINAL HAEMORRHAGE [None]
